FAERS Safety Report 24019175 (Version 1)
Quarter: 2024Q2

REPORT INFORMATION
  Report Type: Spontaneous
  Country: US (occurrence: None)
  Receive Date: 20240626
  Receipt Date: 20240626
  Transmission Date: 20240716
  Serious: Yes (Death)
  Sender: FDA-Public Use
  Company Number: None

PATIENT
  Age: 69 Year
  Sex: Female
  Weight: 119 kg

DRUGS (1)
  1. MIRCERA [Suspect]
     Active Substance: METHOXY POLYETHYLENE GLYCOL-EPOETIN BETA
     Indication: Anaemia of chronic disease
     Dosage: FREQUENCY : EVERY OTHER WEEK;?
     Route: 040
     Dates: start: 20240618, end: 20240618

REACTIONS (5)
  - Blood pressure decreased [None]
  - Nausea [None]
  - Unresponsive to stimuli [None]
  - Pulse absent [None]
  - Cardiac arrest [None]

NARRATIVE: CASE EVENT DATE: 20240618
